FAERS Safety Report 18909245 (Version 1)
Quarter: 2021Q1

REPORT INFORMATION
  Report Type: Spontaneous
  Country: US (occurrence: US)
  Receive Date: 20210217
  Receipt Date: 20210217
  Transmission Date: 20210420
  Serious: Yes (Hospitalization)
  Sender: FDA-Public Use
  Company Number: None

PATIENT
  Age: 82 Year
  Sex: Male

DRUGS (1)
  1. ENOXAPARIN (ENOXAPARIN SODIUM 60MG/0.6ML INJ, SYRINGE, 0.6ML) [Suspect]
     Active Substance: ENOXAPARIN SODIUM
     Indication: DEEP VEIN THROMBOSIS
     Route: 058
     Dates: start: 20210111, end: 20210118

REACTIONS (2)
  - Haemorrhage [None]
  - Haematoma muscle [None]

NARRATIVE: CASE EVENT DATE: 20210118
